FAERS Safety Report 8788094 (Version 2)
Quarter: 2015Q2

REPORT INFORMATION
  Report Type: Report from Study
  Country: US (occurrence: US)
  Receive Date: 20120914
  Receipt Date: 20150407
  Transmission Date: 20150821
  Serious: Yes (Death)
  Sender: FDA-Public Use
  Company Number: US-ROCHE-1127591

PATIENT
  Sex: Female

DRUGS (20)
  1. ZOMETA [Concomitant]
     Active Substance: ZOLEDRONIC ACID
     Route: 065
  2. EMEND [Concomitant]
     Active Substance: APREPITANT
     Route: 048
  3. PEPCID [Concomitant]
     Active Substance: FAMOTIDINE
     Route: 042
  4. AVASTIN [Suspect]
     Active Substance: BEVACIZUMAB
     Indication: MALIGNANT RESPIRATORY TRACT NEOPLASM
     Route: 042
     Dates: start: 20070425
  5. CARBOPLATIN. [Concomitant]
     Active Substance: CARBOPLATIN
     Route: 042
  6. FILGRASTIM [Concomitant]
     Active Substance: FILGRASTIM
     Route: 065
  7. TAXOL [Concomitant]
     Active Substance: PACLITAXEL
     Route: 042
  8. AVASTIN [Suspect]
     Active Substance: BEVACIZUMAB
     Route: 042
  9. ANZEMET [Concomitant]
     Active Substance: DOLASETRON MESYLATE
     Route: 042
  10. TAGAMET [Concomitant]
     Active Substance: CIMETIDINE
     Route: 065
  11. PREDNISOLONE. [Concomitant]
     Active Substance: PREDNISOLONE
     Route: 065
  12. CIPRO [Concomitant]
     Active Substance: CIPROFLOXACIN HYDROCHLORIDE
     Route: 065
  13. GEMZAR [Concomitant]
     Active Substance: GEMCITABINE HYDROCHLORIDE
     Route: 042
  14. BENADRYL [Concomitant]
     Active Substance: DIPHENHYDRAMINE HYDROCHLORIDE
     Route: 042
  15. ATIVAN [Concomitant]
     Active Substance: LORAZEPAM
     Route: 042
  16. ARANESP [Concomitant]
     Active Substance: DARBEPOETIN ALFA
     Route: 065
  17. GEMZAR [Concomitant]
     Active Substance: GEMCITABINE HYDROCHLORIDE
     Route: 042
  18. DECADRON [Concomitant]
     Active Substance: DEXAMETHASONE
     Route: 042
  19. LEVAQUIN [Concomitant]
     Active Substance: LEVOFLOXACIN
  20. XANAX [Concomitant]
     Active Substance: ALPRAZOLAM

REACTIONS (12)
  - Hypoaesthesia [Unknown]
  - Death [Fatal]
  - Epistaxis [Unknown]
  - Anxiety [Unknown]
  - Fatigue [Unknown]
  - Pain [Unknown]
  - Oedema [Unknown]
  - Dyspnoea [Unknown]
  - Thrombocytopenia [Unknown]
  - Respiratory tract congestion [Unknown]
  - Dysuria [Unknown]
  - Asthenia [Unknown]
